FAERS Safety Report 5943362-6 (Version None)
Quarter: 2008Q4

REPORT INFORMATION
  Report Type: 
  Country: None (occurrence: None)
  Receive Date: 20081104
  Receipt Date: 20081021
  Transmission Date: 20090506
  Serious: Yes (Other)
  Sender: FDA-Public Use
  Company Number: JPI-P-005224

PATIENT
  Age: 39 Year
  Sex: Male

DRUGS (5)
  1. LUVOX [Suspect]
     Indication: DEPRESSION
     Dosage: (150 MG), ORAL; (300 MG), ORAL
     Route: 048
     Dates: start: 20080808, end: 20080809
  2. LUVOX [Suspect]
     Indication: DEPRESSION
     Dosage: (150 MG), ORAL; (300 MG), ORAL
     Route: 048
     Dates: start: 20080810, end: 20080812
  3. ALPRAZOLAM [Concomitant]
  4. ZOLPIDEM TARTRATE [Concomitant]
  5. FLUOXETINE HCL [Concomitant]

REACTIONS (6)
  - ASTHENIA [None]
  - FATIGUE [None]
  - HEADACHE [None]
  - HYPERTENSION [None]
  - PANIC ATTACK [None]
  - TACHYCARDIA [None]
